FAERS Safety Report 23107245 (Version 4)
Quarter: 2023Q4

REPORT INFORMATION
  Report Type: Report from Study
  Country: CA (occurrence: CA)
  Receive Date: 20231026
  Receipt Date: 20231123
  Transmission Date: 20240110
  Serious: Yes (Other)
  Sender: FDA-Public Use
  Company Number: CA-002147023-NVSC2023CA223252

PATIENT
  Age: 52 Year
  Sex: Female

DRUGS (3)
  1. KESIMPTA [Suspect]
     Active Substance: OFATUMUMAB
     Indication: Relapsing-remitting multiple sclerosis
     Dosage: 20 MG, QW
     Route: 058
     Dates: start: 20230926
  2. KESIMPTA [Suspect]
     Active Substance: OFATUMUMAB
     Dosage: UNK (3RD LOADING DOSE)
     Route: 065
     Dates: start: 20231018
  3. KESIMPTA [Suspect]
     Active Substance: OFATUMUMAB
     Dosage: UNK
     Route: 065
     Dates: start: 20231108

REACTIONS (8)
  - Pneumonia [Unknown]
  - Lower respiratory tract infection [Unknown]
  - Illness [Unknown]
  - Food poisoning [Recovering/Resolving]
  - Vomiting [Recovering/Resolving]
  - Mastitis [Unknown]
  - Staphylococcal infection [Unknown]
  - Wound [Unknown]
